FAERS Safety Report 6540484-6 (Version None)
Quarter: 2010Q1

REPORT INFORMATION
  Report Type: 
  Country: None (occurrence: None)
  Receive Date: 20100118
  Receipt Date: 20100111
  Transmission Date: 20100710
  Serious: Yes (Hospitalization)
  Sender: FDA-Public Use
  Company Number: US-BIOGENIDEC-2009BI015466

PATIENT
  Age: 32 Year
  Sex: Female

DRUGS (2)
  1. TYSABRI [Suspect]
     Indication: MULTIPLE SCLEROSIS
     Route: 042
     Dates: start: 20090127, end: 20090325
  2. TYSABRI [Suspect]
     Route: 042
     Dates: start: 20090825

REACTIONS (4)
  - ANXIETY [None]
  - BIPOLAR DISORDER [None]
  - CHEST PAIN [None]
  - DYSPNOEA [None]
